FAERS Safety Report 4745816-7 (Version None)
Quarter: 2005Q3

REPORT INFORMATION
  Report Type: 
  Country: None (occurrence: None)
  Receive Date: 20050815
  Receipt Date: 20050815
  Transmission Date: 20060218
  Serious: Yes (Hospitalization, Other)
  Sender: FDA-Public Use
  Company Number: None

PATIENT
  Age: 28 Year
  Sex: Female
  Weight: 55.3388 kg

DRUGS (1)
  1. MIRENA [Suspect]
     Indication: NERVE INJURY
     Dates: start: 20041009, end: 20050812

REACTIONS (6)
  - DEVICE MIGRATION [None]
  - IATROGENIC INJURY [None]
  - IUD MIGRATION [None]
  - NERVE INJURY [None]
  - PAIN [None]
  - UTERINE PERFORATION [None]
